FAERS Safety Report 24887005 (Version 1)
Quarter: 2025Q1

REPORT INFORMATION
  Report Type: Report from Study
  Country: CA (occurrence: CA)
  Receive Date: 20250127
  Receipt Date: 20250127
  Transmission Date: 20250408
  Serious: Yes (Hospitalization, Other)
  Sender: ABBVIE
  Company Number: CA-ABBVIE-6097385

PATIENT
  Sex: Female

DRUGS (1)
  1. BOTOX [Suspect]
     Active Substance: ONABOTULINUMTOXINA
     Indication: Migraine
     Route: 065
     Dates: start: 20211105, end: 20211105

REACTIONS (5)
  - Transient ischaemic attack [Unknown]
  - Pulmonary thrombosis [Unknown]
  - Uterine leiomyoma [Unknown]
  - Bronchitis [Unknown]
  - Influenza [Unknown]
